FAERS Safety Report 14676257 (Version 2)
Quarter: 2018Q2

REPORT INFORMATION
  Report Type: Spontaneous
  Country: FR (occurrence: FR)
  Receive Date: 20180324
  Receipt Date: 20180411
  Transmission Date: 20180711
  Serious: Yes (Hospitalization)
  Sender: FDA-Public Use
  Company Number: FR-TEVA-2018-FR-870204

PATIENT
  Age: 32 Year
  Sex: Male

DRUGS (2)
  1. ADVILMED 5 %, GEL [Suspect]
     Active Substance: IBUPROFEN
     Indication: TORTICOLLIS
     Route: 061
     Dates: start: 20171129, end: 20171203
  2. KETOPROFEN. [Suspect]
     Active Substance: KETOPROFEN
     Indication: TORTICOLLIS
     Route: 048
     Dates: start: 20171129, end: 20171203

REACTIONS (1)
  - Vascular purpura [Not Recovered/Not Resolved]

NARRATIVE: CASE EVENT DATE: 20171206
